FAERS Safety Report 9246788 (Version 1)
Quarter: 2013Q2

REPORT INFORMATION
  Report Type: Spontaneous
  Country: GB (occurrence: GB)
  Receive Date: 20130422
  Receipt Date: 20130422
  Transmission Date: 20140414
  Serious: Yes (Other)
  Sender: FDA-Public Use
  Company Number: GB-009507513-1304GBR008825

PATIENT
  Age: 28 Year
  Sex: Female
  Weight: 76 kg

DRUGS (1)
  1. NUVARING [Suspect]
     Indication: CONTRACEPTION
     Dosage: UNK
     Route: 067
     Dates: start: 20120430, end: 20130308

REACTIONS (2)
  - Anxiety [Recovered/Resolved]
  - Agitated depression [Recovered/Resolved]
